FAERS Safety Report 4360925-2 (Version None)
Quarter: 2004Q2

REPORT INFORMATION
  Report Type: 
  Country: None (occurrence: None)
  Receive Date: 20040520
  Receipt Date: 20040510
  Transmission Date: 20050107
  Serious: Yes (Other)
  Sender: FDA-Public Use
  Company Number: SE-JNJFOC-20040501847

PATIENT
  Age: 70 Year
  Sex: Female

DRUGS (7)
  1. REMICADE [Suspect]
     Indication: RHEUMATOID ARTHRITIS
     Route: 042
  2. METHOTREXATE [Concomitant]
  3. FOLACIN [Concomitant]
  4. FOLACIN [Concomitant]
  5. CALCICHEW [Concomitant]
  6. LANSOPRAZOLE [Concomitant]
  7. FOSAMAX [Concomitant]

REACTIONS (3)
  - CONJUNCTIVITIS BACTERIAL [None]
  - POST PROCEDURAL COMPLICATION [None]
  - RETINAL DETACHMENT [None]
